FAERS Safety Report 25122548 (Version 1)
Quarter: 2025Q1

REPORT INFORMATION
  Report Type: Report from Study
  Country: US (occurrence: US)
  Receive Date: 20250326
  Receipt Date: 20250326
  Transmission Date: 20250409
  Serious: Yes (Hospitalization, Other)
  Sender: JAZZ
  Company Number: US-JAZZ PHARMACEUTICALS-2025-US-004550

PATIENT
  Sex: Female

DRUGS (2)
  1. EPIDIOLEX [Suspect]
     Active Substance: CANNABIDIOL
     Indication: Lennox-Gastaut syndrome
     Dosage: 5.5 MILLILITER, BID
     Route: 048
     Dates: start: 202310
  2. EPIDIOLEX [Suspect]
     Active Substance: CANNABIDIOL

REACTIONS (3)
  - Jaw fracture [Recovering/Resolving]
  - Fall [Recovering/Resolving]
  - Seizure [Unknown]
